FAERS Safety Report 7573848-2 (Version None)
Quarter: 2011Q2

REPORT INFORMATION
  Report Type: 
  Country: None (occurrence: None)
  Receive Date: 20110627
  Receipt Date: 20110608
  Transmission Date: 20111010
  Serious: Yes (Hospitalization, Congenital Anomaly)
  Sender: FDA-Public Use
  Company Number: A0930134A

PATIENT
  Sex: Female

DRUGS (1)
  1. PAXIL CR [Suspect]
     Route: 064

REACTIONS (5)
  - NOONAN SYNDROME [None]
  - DRUG EXPOSURE DURING PREGNANCY [None]
  - PULMONARY VALVE STENOSIS CONGENITAL [None]
  - ATRIAL SEPTAL DEFECT [None]
  - POLYHYDRAMNIOS [None]
